FAERS Safety Report 4683901-9 (Version None)
Quarter: 2005Q2

REPORT INFORMATION
  Report Type: 
  Country: None (occurrence: None)
  Receive Date: 20050607
  Receipt Date: 20050520
  Transmission Date: 20051028
  Serious: Yes (Hospitalization)
  Sender: FDA-Public Use
  Company Number: JP-MERCK-0505USA02791

PATIENT
  Age: 71 Year
  Sex: Female
  Weight: 42 kg

DRUGS (8)
  1. ZOCOR [Suspect]
     Indication: HYPERLIPIDAEMIA
     Route: 048
     Dates: start: 20040527, end: 20050407
  2. AMARYL [Suspect]
     Indication: DIABETES MELLITUS
     Route: 048
     Dates: start: 20040914, end: 20050407
  3. AMLODIN [Concomitant]
     Indication: HYPERTENSION
     Route: 048
     Dates: start: 20040206, end: 20050407
  4. CEPHADOL [Concomitant]
     Indication: DIZZINESS
     Route: 048
     Dates: start: 20010701, end: 20050407
  5. CEPHADOL [Concomitant]
     Indication: TINNITUS
     Route: 048
     Dates: start: 20010701, end: 20050407
  6. DEPAS [Concomitant]
     Indication: DIZZINESS
     Route: 048
     Dates: start: 19910101, end: 20050407
  7. DEPAS [Concomitant]
     Indication: CERVICOBRACHIAL SYNDROME
     Route: 048
     Dates: start: 19910101, end: 20050407
  8. ZOLPIDEM TARTRATE [Concomitant]
     Indication: INSOMNIA
     Route: 048
     Dates: start: 20030607, end: 20050407

REACTIONS (15)
  - ALANINE AMINOTRANSFERASE INCREASED [None]
  - ASPARTATE AMINOTRANSFERASE INCREASED [None]
  - ASTHENIA [None]
  - BLOOD CREATINE PHOSPHOKINASE INCREASED [None]
  - BLOOD GLUCOSE ABNORMAL [None]
  - HEPATIC FUNCTION ABNORMAL [None]
  - HYPERGLYCAEMIA [None]
  - HYPOAESTHESIA [None]
  - HYPOKALAEMIA [None]
  - INFLAMMATION [None]
  - MALAISE [None]
  - MYALGIA [None]
  - QUADRIPLEGIA [None]
  - REFUSAL OF TREATMENT BY PATIENT [None]
  - RHABDOMYOLYSIS [None]
